FAERS Safety Report 17871467 (Version 2)
Quarter: 2020Q2

REPORT INFORMATION
  Report Type: Spontaneous
  Country: US (occurrence: US)
  Receive Date: 20200608
  Receipt Date: 20200617
  Transmission Date: 20200714
  Serious: No
  Sender: FDA-Public Use
  Company Number: US-PFIZER INC-2020222487

PATIENT
  Age: 66 Year
  Sex: Male
  Weight: 181.44 kg

DRUGS (1)
  1. GENOTROPIN MQ [Suspect]
     Active Substance: SOMATROPIN
     Indication: PANCREATIC DISORDER
     Dosage: 0.6 MG, DAILY
     Dates: start: 20111122

REACTIONS (4)
  - Malaise [Unknown]
  - Off label use [Unknown]
  - Product use in unapproved indication [Unknown]
  - Sluggishness [Unknown]
